FAERS Safety Report 11342662 (Version 2)
Quarter: 2018Q2

REPORT INFORMATION
  Report Type: Spontaneous
  Country: CH (occurrence: CH)
  Receive Date: 20150805
  Receipt Date: 20180618
  Transmission Date: 20180711
  Serious: Yes (Other)
  Sender: FDA-Public Use
  Company Number: CH-LPDUSPRD-20150591

PATIENT
  Age: 48 Year
  Sex: Female

DRUGS (1)
  1. FERINJECT [Suspect]
     Active Substance: FERRIC CARBOXYMALTOSE
     Dosage: 1000 MG
     Route: 041
     Dates: start: 20150615, end: 20150615

REACTIONS (18)
  - Influenza like illness [Unknown]
  - Pain in extremity [Unknown]
  - Vomiting [Unknown]
  - Fatigue [Unknown]
  - Renal pain [Unknown]
  - Abdominal pain [Unknown]
  - Headache [Unknown]
  - Thyroid pain [Unknown]
  - Feeling abnormal [Unknown]
  - Body temperature increased [Unknown]
  - Blood phosphorus decreased [Unknown]
  - Back pain [Unknown]
  - Dizziness [Unknown]
  - Bradyphrenia [Unknown]
  - Chills [Unknown]
  - Rash macular [Unknown]
  - Erythema [Unknown]
  - Chest pain [Unknown]

NARRATIVE: CASE EVENT DATE: 20150615
